FAERS Safety Report 6809866-9 (Version None)
Quarter: 2010Q2

REPORT INFORMATION
  Report Type: 
  Country: None (occurrence: None)
  Receive Date: 20100630
  Receipt Date: 20100624
  Transmission Date: 20101027
  Serious: Yes (Hospitalization)
  Sender: FDA-Public Use
  Company Number: DE-B.I. PHARMACEUTICALS,INC./RIDGEFIELD-2010-DE-03188DE

PATIENT
  Sex: Female
  Weight: 90 kg

DRUGS (15)
  1. SPIRIVA [Suspect]
     Indication: CHRONIC OBSTRUCTIVE PULMONARY DISEASE
     Dosage: 2 PUF
     Route: 055
     Dates: start: 20100303
  2. BISOPROLOL FUMARATE [Concomitant]
  3. TOREM [Concomitant]
  4. DELIX [Concomitant]
  5. PULMICORT [Concomitant]
  6. PANTOPRAZOL [Concomitant]
  7. FORADIL [Concomitant]
     Dosage: 2 PUF
  8. ZOPICLON [Concomitant]
  9. AMLODIPINE [Concomitant]
  10. MARCUMAR [Concomitant]
     Dosage: DUE TO QUICK
  11. CLEXANE [Concomitant]
     Route: 058
  12. FENTANYL [Concomitant]
     Dosage: TWICE WEEKLY
  13. KALINOR RET. [Concomitant]
     Dosage: 2 ANZ
  14. OXYGEN [Concomitant]
     Dosage: 1 L/MIN
  15. SALBUTAMOL [Concomitant]
     Dosage: 2 PUF
     Route: 055

REACTIONS (1)
  - OSTEOPOROTIC FRACTURE [None]
